FAERS Safety Report 9245374 (Version 3)
Quarter: 2015Q1

REPORT INFORMATION
  Report Type: Spontaneous
  Country: US (occurrence: US)
  Receive Date: 20130422
  Receipt Date: 20150121
  Transmission Date: 20150721
  Serious: Yes (Other)
  Sender: FDA-Public Use
  Company Number: US-009507513-1304USA010607

PATIENT
  Sex: Male
  Weight: 115.19 kg

DRUGS (1)
  1. PROPECIA [Suspect]
     Active Substance: FINASTERIDE
     Indication: ALOPECIA
     Dosage: 1 MG, QD
     Route: 048
     Dates: start: 19980502, end: 20091229

REACTIONS (19)
  - Penis injury [Unknown]
  - Skin lesion [Recovered/Resolved]
  - Suicidal ideation [Not Recovered/Not Resolved]
  - Brain injury [Unknown]
  - Intervertebral disc disorder [Unknown]
  - Blood cholesterol increased [Unknown]
  - Erectile dysfunction [Unknown]
  - Fatigue [Unknown]
  - Cervicobrachial syndrome [Unknown]
  - Loss of libido [Unknown]
  - Hormone level abnormal [Unknown]
  - Genital disorder male [Unknown]
  - Sexual dysfunction [Not Recovered/Not Resolved]
  - Anxiety [Not Recovered/Not Resolved]
  - Cauda equina syndrome [Not Recovered/Not Resolved]
  - Cognitive disorder [Not Recovered/Not Resolved]
  - Intervertebral disc disorder [Not Recovered/Not Resolved]
  - Blood triglycerides increased [Unknown]
  - Depression [Not Recovered/Not Resolved]

NARRATIVE: CASE EVENT DATE: 19980515
